APPROVED DRUG PRODUCT: CEFPODOXIME PROXETIL
Active Ingredient: CEFPODOXIME PROXETIL
Strength: EQ 200MG BASE
Dosage Form/Route: TABLET;ORAL
Application: A065388 | Product #002 | TE Code: AB
Applicant: ANDA REPOSITORY LLC
Approved: Nov 14, 2007 | RLD: No | RS: No | Type: RX